FAERS Safety Report 4721697-2 (Version None)
Quarter: 2005Q3

REPORT INFORMATION
  Report Type: 
  Country: None (occurrence: None)
  Receive Date: 20050721
  Receipt Date: 20050302
  Transmission Date: 20060218
  Serious: No
  Sender: FDA-Public Use
  Company Number: US-BRISTOL-MYERS SQUIBB COMPANY-12883211

PATIENT
  Age: 78 Year
  Sex: Female
  Weight: 77 kg

DRUGS (9)
  1. COUMADIN [Suspect]
     Indication: ATRIAL FIBRILLATION
     Dosage: 3 MG AND 4 MG ONCE DAILY TABLET ALTERNATED EVERY OTHER DAY
  2. COUMADIN [Suspect]
     Dosage: 3 MG AND 4 MG ONCE DAILY TABLET ALTERNATED EVERY OTHER DAY
  3. COREG [Concomitant]
  4. HYDROCHLOROTHIAZIDE [Concomitant]
  5. LANOXIN [Concomitant]
  6. MAVIK [Concomitant]
  7. PLAVIX [Concomitant]
  8. THYROID TAB [Concomitant]
  9. ZOCOR [Concomitant]

REACTIONS (1)
  - EPISTAXIS [None]
